FAERS Safety Report 6233050-3 (Version None)
Quarter: 2009Q2

REPORT INFORMATION
  Report Type: 
  Country: None (occurrence: None)
  Receive Date: 20090616
  Receipt Date: 20090616
  Transmission Date: 20091009
  Serious: No
  Sender: FDA-Public Use
  Company Number: None

PATIENT
  Age: 25 Year
  Sex: Female
  Weight: 70.5 kg

DRUGS (2)
  1. CYCLOPHOSPHAMIDE [Suspect]
     Dosage: 1086 MG EVERY DAY IV
     Route: 042
     Dates: start: 20090310, end: 20090312
  2. DOXORUBICIN HCL [Suspect]
     Dosage: 68 MG EVERY DAY IV
     Route: 042
     Dates: start: 20090310, end: 20090312

REACTIONS (1)
  - FEBRILE NEUTROPENIA [None]
